FAERS Safety Report 8540199-9 (Version None)
Quarter: 2012Q3

REPORT INFORMATION
  Report Type: 
  Country: None (occurrence: None)
  Receive Date: 20120726
  Receipt Date: 20120718
  Transmission Date: 20120928
  Serious: Yes (Other)
  Sender: FDA-Public Use
  Company Number: CO-ROCHE-1091213

PATIENT
  Sex: Male

DRUGS (3)
  1. XOLAIR [Suspect]
     Indication: PRODUCT USED FOR UNKNOWN INDICATION
     Route: 065
     Dates: start: 20110525
  2. FLUTICASONE PROPIONATE/SALMETEROL [Concomitant]
     Route: 065
  3. ALBUTEROL SULATE [Concomitant]
     Route: 065

REACTIONS (3)
  - PYREXIA [None]
  - COUGH [None]
  - RESPIRATORY DISTRESS [None]
